FAERS Safety Report 23957485 (Version 1)
Quarter: 2024Q2

REPORT INFORMATION
  Report Type: Spontaneous
  Country: US (occurrence: US)
  Receive Date: 20240610
  Receipt Date: 20240610
  Transmission Date: 20240716
  Serious: No
  Sender: FDA-Public Use
  Company Number: US-ACS-20240178

PATIENT
  Sex: Male
  Weight: 67.4 kg

DRUGS (3)
  1. MEROPENEM [Suspect]
     Active Substance: MEROPENEM
     Indication: Pharyngitis
     Dosage: ()
     Dates: start: 20240506, end: 20240508
  2. CEFEPIME [Concomitant]
     Active Substance: CEFEPIME HYDROCHLORIDE
     Indication: Pharyngitis
     Dosage: ()
     Dates: start: 20240505, end: 20240506
  3. DAPTOMYCIN [Concomitant]
     Active Substance: DAPTOMYCIN
     Indication: Pharyngitis
     Dosage: ()
     Dates: start: 20240506, end: 20240509

REACTIONS (1)
  - Urticaria [Recovered/Resolved]
